FAERS Safety Report 8458830-5 (Version None)
Quarter: 2012Q2

REPORT INFORMATION
  Report Type: 
  Country: None (occurrence: None)
  Receive Date: 20120622
  Receipt Date: 20120618
  Transmission Date: 20120825
  Serious: Yes (Other)
  Sender: FDA-Public Use
  Company Number: DE-PFIZER INC-2012146122

PATIENT
  Age: 73 Year

DRUGS (1)
  1. VENLAFAXINE HCL [Suspect]
     Dosage: 75 MG, UNK

REACTIONS (3)
  - DEPRESSION [None]
  - SLEEP DISORDER [None]
  - CARDIOVASCULAR DISORDER [None]
